FAERS Safety Report 20722111 (Version 1)
Quarter: 2022Q2

REPORT INFORMATION
  Report Type: Spontaneous
  Country: US (occurrence: US)
  Receive Date: 20220418
  Receipt Date: 20220418
  Transmission Date: 20220720
  Serious: No
  Sender: FDA-Public Use
  Company Number: US-ABBVIE-21K-163-4017414-00

PATIENT

DRUGS (2)
  1. LUPRON DEPOT-PED [Suspect]
     Active Substance: LEUPROLIDE ACETATE
     Indication: Precocious puberty
     Route: 030
     Dates: end: 202107
  2. LUPRON DEPOT-PED [Suspect]
     Active Substance: LEUPROLIDE ACETATE
     Dosage: REDUCED TO 15 MILLIGRAM
     Route: 030
     Dates: start: 202107

REACTIONS (3)
  - Injection site inflammation [Unknown]
  - Injection site abscess [Unknown]
  - Injection site swelling [Unknown]
